FAERS Safety Report 24970656 (Version 1)
Quarter: 2025Q1

REPORT INFORMATION
  Report Type: Spontaneous
  Country: US (occurrence: US)
  Receive Date: 20250214
  Receipt Date: 20250214
  Transmission Date: 20250409
  Serious: No
  Sender: FRESENIUS KABI
  Company Number: US-FreseniusKabi-FK202502028

PATIENT

DRUGS (1)
  1. EPINEPHRINE\LIDOCAINE [Suspect]
     Active Substance: EPINEPHRINE\LIDOCAINE
     Indication: Product used for unknown indication

REACTIONS (1)
  - Skin necrosis [Unknown]
